FAERS Safety Report 21240040 (Version 1)
Quarter: 2022Q3

REPORT INFORMATION
  Report Type: Spontaneous
  Country: US (occurrence: US)
  Receive Date: 20220822
  Receipt Date: 20220822
  Transmission Date: 20221027
  Serious: No
  Sender: FDA-Public Use
  Company Number: US-NOVARTISTESTPH-NVSC2022US186700

PATIENT
  Sex: Female

DRUGS (1)
  1. LEQVIO [Suspect]
     Active Substance: INCLISIRAN SODIUM
     Indication: Arteriosclerosis
     Dosage: 284 MG, HAD ONE SHOT AND ANOTHER AT 3 MONTHS(VIAL)
     Route: 003
     Dates: start: 20220422, end: 20220722

REACTIONS (1)
  - Arthralgia [Not Recovered/Not Resolved]
